FAERS Safety Report 9344431 (Version 1)
Quarter: 2013Q2

REPORT INFORMATION
  Report Type: Spontaneous
  Country: TW (occurrence: TW)
  Receive Date: 20130612
  Receipt Date: 20130612
  Transmission Date: 20140414
  Serious: Yes (Hospitalization, Other)
  Sender: FDA-Public Use
  Company Number: TW-ROXANE LABORATORIES, INC.-2013-RO-00928RO

PATIENT
  Age: 68 Year
  Sex: Male

DRUGS (1)
  1. LITHIUM CARBONATE [Suspect]
     Indication: BIPOLAR DISORDER
     Dosage: 600 MG

REACTIONS (5)
  - Toxicity to various agents [Recovered/Resolved]
  - Dyskinesia [Recovered/Resolved]
  - Renal failure acute [Recovered/Resolved]
  - Diarrhoea [Unknown]
  - Dehydration [Unknown]
